FAERS Safety Report 19014572 (Version 2)
Quarter: 2021Q3

REPORT INFORMATION
  Report Type: Spontaneous
  Country: IT (occurrence: IT)
  Receive Date: 20210317
  Receipt Date: 20210802
  Transmission Date: 20211014
  Serious: Yes (Other)
  Sender: FDA-Public Use
  Company Number: IT-CELLTRION INC.-2021IT003269

PATIENT

DRUGS (1)
  1. TRASTUZUMAB (UNKNOWN) [Suspect]
     Active Substance: TRASTUZUMAB
     Indication: PAGET^S DISEASE OF THE VULVA
     Dosage: UNK UNK, 3 TIMES/WK
     Route: 065
     Dates: start: 201902

REACTIONS (5)
  - Therapeutic product effect incomplete [Recovered/Resolved]
  - Therapeutic response unexpected [Unknown]
  - Paget^s disease of the vulva [Recovering/Resolving]
  - Condition aggravated [Recovering/Resolving]
  - Off label use [Unknown]

NARRATIVE: CASE EVENT DATE: 201911
